FAERS Safety Report 17427337 (Version 1)
Quarter: 2020Q1

REPORT INFORMATION
  Report Type: Spontaneous
  Country: CN (occurrence: CN)
  Receive Date: 20200217
  Receipt Date: 20200217
  Transmission Date: 20200409
  Serious: Yes (Hospitalization)
  Sender: FDA-Public Use
  Company Number: CN-BAXTER-2020BAX003129

PATIENT
  Age: 52 Year
  Sex: Female
  Weight: 68 kg

DRUGS (8)
  1. 0.9% SODIUM CHLORIDE INJECTION [Suspect]
     Active Substance: SODIUM CHLORIDE
     Indication: MEDICATION DILUTION
     Dosage: CYCLE 1, ENDOXAN + 0.9 % SODIUM CHLORIDE [NS] OF 100 ML
     Route: 041
     Dates: start: 20200120, end: 20200120
  2. DOXORUBICIN HYDROCHLORIDE. [Suspect]
     Active Substance: DOXORUBICIN HYDROCHLORIDE
     Indication: INVASIVE BREAST CARCINOMA
     Dosage: CYCLE 1, DOXORUBICIN HYDROCHLORIDE + STERILE WATER FOR INJECTION OF 500 ML
     Route: 041
     Dates: start: 20200120, end: 20200120
  3. ENDOXAN [Suspect]
     Active Substance: CYCLOPHOSPHAMIDE
     Dosage: DOSE RE-INTRODUCED, CYCLE 2, ENDOXAN + 0.9 % NS
     Route: 041
     Dates: start: 20200203
  4. STERILE WATER [Suspect]
     Active Substance: WATER
     Indication: MEDICATION DILUTION
     Dosage: CYCLE 1, DOXORUBICIN HYDROCHLORIDE 98 MG + STERILE WATER FOR INJECTION
     Route: 041
     Dates: start: 20200120, end: 20200120
  5. STERILE WATER [Suspect]
     Active Substance: WATER
     Dosage: DOSE RE-INTRODUCED, CYCLE 2, DOXORUBICIN HYDROCHLORIDE + STERILE WATER FOR INJECTION
     Route: 041
     Dates: start: 20200203
  6. ENDOXAN [Suspect]
     Active Substance: CYCLOPHOSPHAMIDE
     Indication: INVASIVE BREAST CARCINOMA
     Dosage: CYCLE 1, ENDOXAN + 0.9 % SODIUM CHLORIDE [NS] OF 100 ML
     Route: 041
     Dates: start: 20200120, end: 20200120
  7. 0.9% SODIUM CHLORIDE INJECTION [Suspect]
     Active Substance: SODIUM CHLORIDE
     Dosage: DOSE RE-INTRODUCED, CYCLE 2, ENDOXAN + NS
     Route: 041
     Dates: start: 20200203
  8. DOXORUBICIN HYDROCHLORIDE. [Suspect]
     Active Substance: DOXORUBICIN HYDROCHLORIDE
     Dosage: DOSE RE-INTRODUCED, CYCLE 2, DOXORUBICIN HYDROCHLORIDE + STERILE WATER FOR INJECTION
     Route: 041
     Dates: start: 20200203

REACTIONS (2)
  - White blood cell count decreased [Recovering/Resolving]
  - Neutropenia [Recovering/Resolving]

NARRATIVE: CASE EVENT DATE: 20200131
